FAERS Safety Report 6162098-2 (Version None)
Quarter: 2009Q2

REPORT INFORMATION
  Report Type: 
  Country: None (occurrence: None)
  Receive Date: 20090417
  Receipt Date: 20090417
  Transmission Date: 20091009
  Serious: No
  Sender: FDA-Public Use
  Company Number: None

PATIENT
  Sex: Male
  Weight: 93.18 kg

DRUGS (10)
  1. LISINOPRIL [Suspect]
     Dosage: 40MG TABLET 40 MG QD ORAL
     Route: 048
     Dates: start: 20081204, end: 20090416
  2. ALBUTEROL [Concomitant]
  3. AMITRIPTLINE HYDROCHLORIDE TAB [Concomitant]
  4. CLARITIN-D [Concomitant]
  5. FLUTICASONE PROPIONATE [Concomitant]
  6. HYDROCORTISONE [Concomitant]
  7. IBUPROFEN [Concomitant]
  8. LOSARTAN POTASSIUM [Concomitant]
  9. TERAZOSIN HCL [Concomitant]
  10. WELLBUTRIN [Concomitant]

REACTIONS (1)
  - COUGH [None]
